FAERS Safety Report 21566113 (Version 1)
Quarter: 2022Q4

REPORT INFORMATION
  Report Type: Spontaneous
  Country: US (occurrence: US)
  Receive Date: 20221108
  Receipt Date: 20221108
  Transmission Date: 20230113
  Serious: Yes (Hospitalization)
  Sender: FDA-Public Use
  Company Number: US-MYLANLABS-2022M1122375

PATIENT
  Age: 17 Year
  Sex: Female

DRUGS (2)
  1. ACETAMINOPHEN [Suspect]
     Active Substance: ACETAMINOPHEN
     Indication: Product used for unknown indication
     Dosage: 100-150 TABLETS
     Route: 048
  2. SENNOSIDES [Suspect]
     Active Substance: SENNOSIDES
     Indication: Laxative supportive care
     Dosage: UNK
     Route: 048

REACTIONS (5)
  - Intentional overdose [Recovering/Resolving]
  - Toxicity to various agents [Recovering/Resolving]
  - Mental status changes [Recovering/Resolving]
  - Abdominal pain [Recovered/Resolved]
  - Apnoea [Recovering/Resolving]
